FAERS Safety Report 12799250 (Version 1)
Quarter: 2016Q3

REPORT INFORMATION
  Report Type: Spontaneous
  Country: US (occurrence: US)
  Receive Date: 20160930
  Receipt Date: 20160930
  Transmission Date: 20161109
  Serious: Yes (Other)
  Sender: FDA-Public Use
  Company Number: US-GLAXOSMITHKLINE-US2016142315

PATIENT
  Age: 71 Year
  Sex: Female

DRUGS (1)
  1. CITRUCEL [Suspect]
     Active Substance: METHYLCELLULOSE (4000 MPA.S)
     Indication: CONSTIPATION
     Dosage: UNK, DAILY
     Dates: start: 20160628

REACTIONS (4)
  - Incorrect drug administration duration [Unknown]
  - Rectal haemorrhage [Not Recovered/Not Resolved]
  - Drug dose omission [Unknown]
  - Disease recurrence [Unknown]

NARRATIVE: CASE EVENT DATE: 20160907
